FAERS Safety Report 16341238 (Version 1)
Quarter: 2019Q2

REPORT INFORMATION
  Report Type: Spontaneous
  Country: US (occurrence: US)
  Receive Date: 20190522
  Receipt Date: 20190522
  Transmission Date: 20190711
  Serious: Yes (Other)
  Sender: FDA-Public Use
  Company Number: US-SUN PHARMACEUTICAL INDUSTRIES LTD-2018R1-193272

PATIENT
  Age: 15 Year
  Sex: Male

DRUGS (12)
  1. TRAMADOL. [Interacting]
     Active Substance: TRAMADOL
     Dosage: 200 GRAM
     Route: 048
     Dates: start: 201511
  2. LOPERAMIDE [Interacting]
     Active Substance: LOPERAMIDE
     Indication: DIARRHOEA
     Dosage: 2 MILLIGRAM, BID
     Route: 048
     Dates: start: 201511
  3. TRAMADOL. [Interacting]
     Active Substance: TRAMADOL
     Dosage: 100 GRAM
     Route: 048
     Dates: start: 201511
  4. LOPERAMIDE [Interacting]
     Active Substance: LOPERAMIDE
     Dosage: 2 MILLIGRAM, QD
     Route: 048
  5. TRAMADOL. [Interacting]
     Active Substance: TRAMADOL
     Dosage: 400 GRAM
     Route: 048
     Dates: start: 201511
  6. CHLORPHENIRAMINE. [Suspect]
     Active Substance: CHLORPHENIRAMINE
     Indication: INFLUENZA LIKE ILLNESS
     Dosage: 4 MILLIGRAM
     Route: 048
     Dates: start: 201511
  7. CLONAZEPAM. [Interacting]
     Active Substance: CLONAZEPAM
     Indication: SLEEP DISORDER
     Dosage: 2 MILLIGRAM
     Route: 048
     Dates: start: 201511
  8. CLONIDINE. [Interacting]
     Active Substance: CLONIDINE
     Indication: HEART RATE
     Dosage: 0.1 MILLIGRAM, TID
     Route: 048
     Dates: start: 201511
  9. TRAMADOL. [Interacting]
     Active Substance: TRAMADOL
     Indication: DRUG DEPENDENCE
     Dosage: 300 MILLIGRAM
     Route: 048
     Dates: start: 201511
  10. TRAMADOL. [Interacting]
     Active Substance: TRAMADOL
     Dosage: 300 GRAM
     Route: 048
     Dates: start: 201511
  11. CLONIDINE. [Interacting]
     Active Substance: CLONIDINE
     Indication: AGITATION
  12. TRAMADOL. [Interacting]
     Active Substance: TRAMADOL
     Indication: DRUG DEPENDENCE
     Dosage: 300 MILLIGRAM
     Route: 042
     Dates: start: 201511

REACTIONS (4)
  - Abnormal behaviour [Unknown]
  - Drug interaction [Unknown]
  - Dependence [Unknown]
  - Aggression [Unknown]
